FAERS Safety Report 9718813 (Version 3)
Quarter: 2014Q2

REPORT INFORMATION
  Report Type: Spontaneous
  Country: US (occurrence: US)
  Receive Date: 20131127
  Receipt Date: 20140501
  Transmission Date: 20141212
  Serious: Yes (Hospitalization)
  Sender: FDA-Public Use
  Company Number: US-GLAXOSMITHKLINE-A1051474A

PATIENT
  Age: 61 Year
  Sex: Female

DRUGS (7)
  1. VENTOLIN [Suspect]
     Indication: CHRONIC OBSTRUCTIVE PULMONARY DISEASE
     Dosage: 90MCG AS REQUIRED
     Route: 065
     Dates: start: 2012
  2. ASMANEX [Concomitant]
  3. FLONASE [Concomitant]
  4. ALBUTEROL NEBULIZER TREATMENT [Concomitant]
  5. CITALOPRAM [Concomitant]
  6. TRAZODONE [Concomitant]
  7. ALPRAZOLAM [Concomitant]

REACTIONS (5)
  - Dyspnoea [Recovered/Resolved]
  - Infection [Recovered/Resolved]
  - Oxygen saturation decreased [Recovered/Resolved]
  - Dysphonia [Recovered/Resolved]
  - Drug ineffective [Unknown]
